FAERS Safety Report 25858323 (Version 2)
Quarter: 2025Q4

REPORT INFORMATION
  Report Type: Spontaneous
  Country: US (occurrence: US)
  Receive Date: 20250929
  Receipt Date: 20251003
  Transmission Date: 20260118
  Serious: Yes (Hospitalization)
  Sender: MACLEODS
  Company Number: US-MACLEODS PHARMA-MAC2025055436

PATIENT

DRUGS (7)
  1. MEMANTINE [Suspect]
     Active Substance: MEMANTINE
     Indication: Catatonia
     Route: 065
  2. RISPERIDONE [Concomitant]
     Active Substance: RISPERIDONE
     Indication: Psychotic disorder
     Route: 065
  3. DIPHENHYDRAMINE [Concomitant]
     Active Substance: DIPHENHYDRAMINE
     Route: 065
  4. DIPHENHYDRAMINE [Concomitant]
     Active Substance: DIPHENHYDRAMINE
  5. DIVALPROEX SODIUM [Concomitant]
     Active Substance: DIVALPROEX SODIUM
     Route: 065
  6. LORAZEPAM [Concomitant]
     Active Substance: LORAZEPAM
     Indication: Catatonia
     Dosage: 5 MG PER DAY SPLIT INTO 3 DOSES.
     Route: 065
  7. LORAZEPAM [Concomitant]
     Active Substance: LORAZEPAM
     Route: 065

REACTIONS (1)
  - Aggression [Recovering/Resolving]
